FAERS Safety Report 6984897-7 (Version None)
Quarter: 2010Q3

REPORT INFORMATION
  Report Type: 
  Country: None (occurrence: None)
  Receive Date: 20100915
  Receipt Date: 20100903
  Transmission Date: 20110219
  Serious: Yes (Death)
  Sender: FDA-Public Use
  Company Number: FR-ELI_LILLY_AND_COMPANY-FR201009001133

PATIENT
  Age: 45 Year
  Sex: Male

DRUGS (3)
  1. ZYPREXA [Suspect]
     Dosage: UNK, UNKNOWN
     Route: 048
  2. HYPNOTICS AND SEDATIVES [Concomitant]
     Route: 048
  3. NICOTINE [Concomitant]

REACTIONS (1)
  - CARDIAC DEATH [None]
